FAERS Safety Report 7237696-5 (Version None)
Quarter: 2011Q1

REPORT INFORMATION
  Report Type: 
  Country: None (occurrence: None)
  Receive Date: 20110121
  Receipt Date: 20110110
  Transmission Date: 20110831
  Serious: Yes (Other)
  Sender: FDA-Public Use
  Company Number: PHHY2011US03050

PATIENT
  Sex: Female

DRUGS (2)
  1. GENTEAL PM LUBRICANT EYE OINTMENT [Suspect]
     Dosage: 15 %, QD
  2. GENTEAL [Suspect]

REACTIONS (2)
  - LACRIMATION INCREASED [None]
  - VISION BLURRED [None]
